FAERS Safety Report 12192024 (Version 1)
Quarter: 2016Q1

REPORT INFORMATION
  Report Type: Spontaneous
  Country: NL (occurrence: NL)
  Receive Date: 20160318
  Receipt Date: 20160318
  Transmission Date: 20160526
  Serious: Yes (Hospitalization)
  Sender: FDA-Public Use
  Company Number: NL-ASTRAZENECA-2016SE27683

PATIENT

DRUGS (10)
  1. TOCOFEROL [Suspect]
     Active Substance: TOCOPHEROL
     Indication: CYSTIC FIBROSIS
     Dosage: 25 MG/ML, 4 DF DAILY
     Route: 064
     Dates: start: 201507
  2. OMEPRAZOL [Suspect]
     Active Substance: OMEPRAZOLE
     Dosage: 20 MG, TWO TIMES PER DAY 1 CAPSULE
     Route: 064
     Dates: start: 201507
  3. COTRIMOXAZOL [Suspect]
     Active Substance: SULFAMETHOXAZOLE\TRIMETHOPRIM
     Dosage: 160/800 MG, AT PATIENT^S OWN DISCRETION
     Route: 064
     Dates: start: 201507
  4. MOMETASONE FUROATE. [Suspect]
     Active Substance: MOMETASONE FUROATE
     Dosage: 50 UG/DO, 3 TIMES PER DAY 2
     Route: 064
     Dates: start: 201507
  5. PANCREASE HL [Suspect]
     Active Substance: PANCRELIPASE
     Dosage: AT PATIENT^S OWN DISCRETION
     Route: 064
     Dates: start: 201507
  6. PROPRANOLOL [Suspect]
     Active Substance: PROPRANOLOL\PROPRANOLOL HYDROCHLORIDE
     Dosage: 2 TIMES PER DAY 2 TABLET
     Route: 064
     Dates: start: 201507
  7. AZATHIOPRINE. [Suspect]
     Active Substance: AZATHIOPRINE
     Route: 064
     Dates: start: 201507
  8. URSOCHOL [Suspect]
     Active Substance: URSODIOL
     Dosage: 1 TIME PER DAY 4 TABLET
     Route: 064
     Dates: start: 201507
  9. PREDNISOLON [Suspect]
     Active Substance: PREDNISOLONE
     Dosage: 1 TIME PER DAY 1 TABLET
     Route: 064
     Dates: start: 201507
  10. PROGRAFT [Suspect]
     Active Substance: TACROLIMUS
     Dosage: 2 TIMES PER DAY 1.5 TABLET
     Route: 064
     Dates: start: 201507

REACTIONS (1)
  - Foetal growth restriction [Recovering/Resolving]

NARRATIVE: CASE EVENT DATE: 201602
